FAERS Safety Report 8097268-X (Version None)
Quarter: 2012Q1

REPORT INFORMATION
  Report Type: 
  Country: None (occurrence: None)
  Receive Date: 20120128
  Receipt Date: 20110627
  Transmission Date: 20120608
  Serious: No
  Sender: FDA-Public Use
  Company Number: US-ABBOTT-11P-163-0730359-00

PATIENT
  Sex: Male
  Weight: 90.8 kg

DRUGS (3)
  1. DIOVAN [Concomitant]
     Indication: HYPERTENSION
  2. HUMIRA [Suspect]
     Dates: start: 20110301, end: 20110301
  3. HUMIRA [Suspect]
     Indication: PSORIASIS
     Dates: start: 20110301

REACTIONS (4)
  - TOOTH INFECTION [None]
  - SINUSITIS [None]
  - SINUS HEADACHE [None]
  - SINUS CONGESTION [None]
